FAERS Safety Report 9420917 (Version 2)
Quarter: 2013Q3

REPORT INFORMATION
  Report Type: Spontaneous
  Country: TR (occurrence: None)
  Receive Date: 20130723
  Receipt Date: 20130723
  Transmission Date: 20140515
  Serious: Yes (Other)
  Sender: FDA-Public Use
  Company Number: 7223904

PATIENT
  Age: 28 Year
  Sex: Female

DRUGS (5)
  1. L-THYROXIN [Suspect]
     Indication: THYROIDITIS SUBACUTE
  2. L-THYROXIN [Suspect]
     Indication: HYPERTHYROIDISM
  3. CYCLOPHOSPHAMIDE (CYCLOPHOSPHAMIDE) [Suspect]
     Indication: DIFFUSE LARGE B-CELL LYMPHOMA
  4. DOXORUBICIN (DOXORUBICIN) (DOXORUBICIN) [Suspect]
     Indication: DIFFUSE LARGE B-CELL LYMPHOMA
  5. PREDNISONE (PREDNISONE) [Suspect]
     Indication: DIFFUSE LARGE B-CELL LYMPHOMA

REACTIONS (2)
  - Respiratory distress [None]
  - Maternal exposure during pregnancy [None]
